FAERS Safety Report 6274169-0 (Version None)
Quarter: 2009Q3

REPORT INFORMATION
  Report Type: 
  Country: None (occurrence: None)
  Receive Date: 20090720
  Receipt Date: 20090708
  Transmission Date: 20100115
  Serious: Yes (Hospitalization, Other)
  Sender: FDA-Public Use
  Company Number: US-PFIZER INC-2009205245

PATIENT
  Sex: Male

DRUGS (1)
  1. CHANTIX [Suspect]
     Indication: BRONCHITIS CHRONIC
     Dosage: UNK

REACTIONS (7)
  - AGITATION [None]
  - ANXIETY [None]
  - DELUSION [None]
  - HALLUCINATION [None]
  - PARANOIA [None]
  - SCHIZOPHRENIFORM DISORDER [None]
  - TINNITUS [None]
